FAERS Safety Report 6082870-7 (Version None)
Quarter: 2009Q1

REPORT INFORMATION
  Report Type: 
  Country: None (occurrence: None)
  Receive Date: 20090218
  Receipt Date: 20090206
  Transmission Date: 20090719
  Serious: Yes (Other)
  Sender: FDA-Public Use
  Company Number: PHHY2009JP03892

PATIENT
  Sex: Female

DRUGS (3)
  1. REGITINE [Suspect]
     Indication: PHAEOCHROMOCYTOMA
     Dosage: 150MG - 200MG
     Route: 042
     Dates: start: 20081224, end: 20090128
  2. ONOACT [Suspect]
     Indication: PHAEOCHROMOCYTOMA
     Dosage: 200MG - 2G
     Route: 042
     Dates: start: 20081224, end: 20090128
  3. MAGNESIUM SULFATE [Concomitant]
     Indication: UTERINE CONTRACTIONS ABNORMAL

REACTIONS (4)
  - CAESAREAN SECTION [None]
  - DRUG EXPOSURE DURING PREGNANCY [None]
  - LIVER DISORDER [None]
  - PREMATURE LABOUR [None]
